FAERS Safety Report 15196140 (Version 1)
Quarter: 2018Q3

REPORT INFORMATION
  Report Type: Spontaneous
  Country: US (occurrence: US)
  Receive Date: 20180626
  Receipt Date: 20180626
  Transmission Date: 20181010
  Serious: Yes (Hospitalization, Disabling, Other)
  Sender: FDA-Public Use
  Company Number: None

PATIENT
  Age: 60 Year
  Sex: Female
  Weight: 55.35 kg

DRUGS (9)
  1. CALCIUM [Concomitant]
     Active Substance: CALCIUM
  2. VOLTAREN [Concomitant]
     Active Substance: DICLOFENAC SODIUM
  3. PROLIA [Suspect]
     Active Substance: DENOSUMAB
     Indication: OSTEOPOROSIS
     Dosage: ?          QUANTITY:1 INJECTION(S);OTHER FREQUENCY:EVERY 6 MONTHS;OTHER ROUTE:SUB Q?
  4. NEURONTIN [Concomitant]
     Active Substance: GABAPENTIN
  5. VITAMIN D [Concomitant]
     Active Substance: CHOLECALCIFEROL
  6. MAGNESIUM [Concomitant]
     Active Substance: MAGNESIUM
  7. COLACE [Concomitant]
     Active Substance: DOCUSATE SODIUM
  8. MULTIPLE VITAMIN [Concomitant]
     Active Substance: VITAMINS
  9. FORTEO [Suspect]
     Active Substance: TERIPARATIDE
     Indication: OSTEOPOROSIS
     Dosage: ?          QUANTITY:1 INJECTION(S);OTHER ROUTE:DAILY SUB Q INJECTION?
     Dates: start: 20150317, end: 20151110

REACTIONS (34)
  - Deafness [None]
  - Nervousness [None]
  - Hip fracture [None]
  - Gait disturbance [None]
  - Pain in jaw [None]
  - Bladder disorder [None]
  - Fatigue [None]
  - Back pain [None]
  - Muscle spasms [None]
  - Hypoaesthesia [None]
  - Coordination abnormal [None]
  - Loose tooth [None]
  - Scoliosis [None]
  - Dry skin [None]
  - Malaise [None]
  - Paraesthesia [None]
  - Femur fracture [None]
  - Asthenia [None]
  - Depression [None]
  - Impaired healing [None]
  - Gait inability [None]
  - Loss of personal independence in daily activities [None]
  - Dyspnoea exertional [None]
  - Throat lesion [None]
  - Dizziness [None]
  - Crying [None]
  - Alopecia [None]
  - Arthralgia [None]
  - Skin discolouration [None]
  - Pain in extremity [None]
  - Bone pain [None]
  - Skin lesion [None]
  - Hysterectomy [None]
  - Memory impairment [None]

NARRATIVE: CASE EVENT DATE: 20170522
